FAERS Safety Report 22587665 (Version 2)
Quarter: 2025Q2

REPORT INFORMATION
  Report Type: Spontaneous
  Country: PT (occurrence: PT)
  Receive Date: 20230612
  Receipt Date: 20250619
  Transmission Date: 20250717
  Serious: Yes (Death, Hospitalization, Other)
  Sender: AUROBINDO
  Company Number: PT-AUROBINDO-AUR-APL-2023-041294

PATIENT
  Age: 58 Year
  Sex: Male

DRUGS (8)
  1. FOLIC ACID [Suspect]
     Active Substance: FOLIC ACID
     Indication: Systemic scleroderma
     Dosage: 10 MILLIGRAM, EVERY WEEK
     Route: 065
  2. FOLIC ACID [Suspect]
     Active Substance: FOLIC ACID
     Indication: Dermatomyositis
  3. NIFEDIPINE [Suspect]
     Active Substance: NIFEDIPINE
     Indication: Systemic scleroderma
     Dosage: 20 MILLIGRAM, ONCE A DAY
     Route: 065
  4. NIFEDIPINE [Suspect]
     Active Substance: NIFEDIPINE
     Indication: Dermatomyositis
  5. METHOTREXATE [Suspect]
     Active Substance: METHOTREXATE
     Indication: Systemic scleroderma
     Dosage: 25 MILLIGRAM, EVERY WEEK
     Route: 065
  6. METHOTREXATE [Suspect]
     Active Substance: METHOTREXATE
     Indication: Dermatomyositis
  7. PREDNISOLONE [Suspect]
     Active Substance: PREDNISOLONE
     Indication: Systemic scleroderma
     Dosage: 5 MILLIGRAM, ONCE A DAY
     Route: 065
  8. PREDNISOLONE [Suspect]
     Active Substance: PREDNISOLONE
     Indication: Dermatomyositis

REACTIONS (4)
  - Pneumonia [Fatal]
  - Pancytopenia [Unknown]
  - Scleroderma renal crisis [Unknown]
  - Anaemia [Unknown]
